FAERS Safety Report 22647238 (Version 1)
Quarter: 2023Q2

REPORT INFORMATION
  Report Type: Spontaneous
  Country: US (occurrence: US)
  Receive Date: 20230627
  Receipt Date: 20230627
  Transmission Date: 20230721
  Serious: No
  Sender: FDA-Public Use
  Company Number: US-Merz Pharmaceuticals GmbH-23-01699

PATIENT
  Sex: Female

DRUGS (3)
  1. XEOMIN [Suspect]
     Active Substance: INCOBOTULINUMTOXINA
     Indication: Migraine
     Route: 030
  2. XEOMIN [Suspect]
     Active Substance: INCOBOTULINUMTOXINA
     Indication: Musculoskeletal stiffness
  3. JEUVEAU [Concomitant]
     Active Substance: PRABOTULINUMTOXINA-XVFS

REACTIONS (2)
  - Injection site hypersensitivity [Not Recovered/Not Resolved]
  - Off label use [Unknown]
